FAERS Safety Report 21306441 (Version 1)
Quarter: 2022Q3

REPORT INFORMATION
  Report Type: Spontaneous
  Country: US (occurrence: US)
  Receive Date: 20220908
  Receipt Date: 20220908
  Transmission Date: 20221027
  Serious: No
  Sender: FDA-Public Use
  Company Number: US-PERRIGO-22US004109

PATIENT
  Age: 73 Year
  Sex: Female
  Weight: 43.537 kg

DRUGS (9)
  1. MINOXIDIL [Suspect]
     Active Substance: MINOXIDIL
     Indication: Madarosis
     Dosage: UNKNOWN, QD
     Route: 061
     Dates: start: 20220131
  2. ESTRADIOL [Concomitant]
     Active Substance: ESTRADIOL
     Indication: Blood testosterone abnormal
     Dosage: 0.25 MG, UNKNOWN
     Route: 065
     Dates: start: 20220205
  3. PROMETRIUM [Concomitant]
     Active Substance: PROGESTERONE
     Indication: Blood testosterone abnormal
     Dosage: 100 MG
     Route: 065
     Dates: start: 20220205
  4. COLESEVELAM HYDROCHLORIDE [Concomitant]
     Active Substance: COLESEVELAM HYDROCHLORIDE
     Indication: Blood cholesterol increased
     Dosage: UNK
     Route: 065
     Dates: start: 2021
  5. QVAR [Concomitant]
     Active Substance: BECLOMETHASONE DIPROPIONATE
     Indication: Asthma
     Dosage: UNK
     Route: 065
  6. CALCIUM [Concomitant]
     Active Substance: CALCIUM
     Indication: Supplementation therapy
     Dosage: UNK
     Route: 065
  7. GRAPESEED EXTRACT [VITIS VINIFERA SEED] [Concomitant]
     Indication: Alopecia
     Dosage: UNK
     Route: 065
     Dates: start: 202202
  8. VITAMIN D NOS [Concomitant]
     Active Substance: VITAMIN D NOS
     Indication: Supplementation therapy
     Dosage: UNK
     Route: 065
  9. VITAMIN B [Concomitant]
     Active Substance: VITAMIN B
     Indication: Supplementation therapy
     Dosage: UNK
     Route: 065

REACTIONS (3)
  - Increased appetite [Not Recovered/Not Resolved]
  - Weight increased [Not Recovered/Not Resolved]
  - Product administered at inappropriate site [Not Recovered/Not Resolved]

NARRATIVE: CASE EVENT DATE: 20220131
